FAERS Safety Report 18094428 (Version 1)
Quarter: 2020Q3

REPORT INFORMATION
  Report Type: Spontaneous
  Country: US (occurrence: US)
  Receive Date: 20200730
  Receipt Date: 20200730
  Transmission Date: 20201103
  Serious: No
  Sender: FDA-Public Use
  Company Number: US-RISING PHARMA HOLDINGS, INC.-2020RIS00178

PATIENT
  Age: 69 Year
  Sex: Female

DRUGS (1)
  1. CEVIMELINE HYDROCHLORIDE. [Suspect]
     Active Substance: CEVIMELINE HYDROCHLORIDE
     Indication: DRY MOUTH
     Dosage: UNK UNK, 3X/DAY
     Route: 048
     Dates: start: 20200130

REACTIONS (1)
  - Foreign body in throat [Not Recovered/Not Resolved]
